FAERS Safety Report 17904512 (Version 1)
Quarter: 2020Q2

REPORT INFORMATION
  Report Type: Spontaneous
  Country: DE (occurrence: DE)
  Receive Date: 20200617
  Receipt Date: 20200617
  Transmission Date: 20200714
  Serious: Yes (Hospitalization)
  Sender: FDA-Public Use
  Company Number: DE-ACCORD-185524

PATIENT
  Age: 76 Year
  Sex: Male
  Weight: 59 kg

DRUGS (13)
  1. ATORVASTATIN [Concomitant]
     Active Substance: ATORVASTATIN
     Dosage: 40 MG, 0-0-1-0, TABLETTEN
     Route: 048
  2. LORAZEPAM. [Concomitant]
     Active Substance: LORAZEPAM
     Dosage: 1 MG, 0-0-0-1, TABLETTEN
     Route: 048
  3. MITOMYCIN. [Suspect]
     Active Substance: MITOMYCIN
     Indication: PRODUCT USED FOR UNKNOWN INDICATION
     Dosage: NK MG, ACCORDING TO THE SCHEME
  4. CARVEDILOL/CARVEDILOL HYDROCHLODRIDE [Suspect]
     Active Substance: CARVEDILOL HYDROCHLORIDE
     Indication: PRODUCT USED FOR UNKNOWN INDICATION
     Dosage: 25 MG, 1-0-0-0, TABLET
     Route: 048
  5. TICAGRELOR. [Concomitant]
     Active Substance: TICAGRELOR
     Dosage: 90 MG, 1-0-1-0, TABLETTEN
     Route: 048
  6. CANDESARTAN. [Concomitant]
     Active Substance: CANDESARTAN
     Dosage: 8 MG, 0.5-0-0-0, TABLETTEN
     Route: 048
  7. FLUTICASONE/SALMETEROL [Concomitant]
     Active Substance: FLUTICASONE PROPIONATE\SALMETEROL XINAFOATE
     Dosage: 250/50 MG, 1-0-1-0, METERED DOSE INHALER
     Route: 055
  8. TIOTROPIUMBROMID [Concomitant]
     Dosage: 18 UG, 1-0-0-0,METERED DOSE INHALER
     Route: 055
  9. ACETYLSALICYLIC ACID [Concomitant]
     Active Substance: ASPIRIN
     Dosage: 100 MG, 0-1-0-0, TABLET
     Route: 048
  10. METAMIZOLE [Concomitant]
     Active Substance: METAMIZOLE
     Dosage: 500 MG, 3X, TROPFEN
     Route: 048
  11. PANTOPRAZOLE [Concomitant]
     Active Substance: PANTOPRAZOLE
     Dosage: 40 MG, 1-0-0-0, TABLETTEN
     Route: 048
  12. METAMIZOLE SODIUM [Concomitant]
     Active Substance: METAMIZOLE SODIUM
     Dosage: 500 MG, 30-0-0-0, TROPFEN
     Route: 048
  13. FUROSEMIDE. [Concomitant]
     Active Substance: FUROSEMIDE
     Dosage: 40 MG, 1-0-0-0, TABLETTEN
     Route: 048

REACTIONS (4)
  - General physical health deterioration [Unknown]
  - Dyspnoea [Unknown]
  - Cough [Unknown]
  - Condition aggravated [Unknown]
